FAERS Safety Report 6450528-8 (Version None)
Quarter: 2009Q4

REPORT INFORMATION
  Report Type: 
  Country: None (occurrence: None)
  Receive Date: 20091123
  Receipt Date: 20091110
  Transmission Date: 20100525
  Serious: Yes (Hospitalization)
  Sender: FDA-Public Use
  Company Number: PHHY2009MX35399

PATIENT
  Sex: Female

DRUGS (1)
  1. DIOVAN HCT [Suspect]
     Indication: HYPERTENSION
     Dosage: 160/12.5MG DAILY
     Dates: start: 19990101

REACTIONS (3)
  - CONDITION AGGRAVATED [None]
  - VARICOSE ULCERATION [None]
  - VARICOSE VEIN OPERATION [None]
